FAERS Safety Report 14524306 (Version 2)
Quarter: 2018Q4

REPORT INFORMATION
  Report Type: Spontaneous
  Country: US (occurrence: US)
  Receive Date: 20180213
  Receipt Date: 20181030
  Transmission Date: 20190204
  Serious: Yes (Hospitalization)
  Sender: FDA-Public Use
  Company Number: US-PFIZER INC-2018059224

PATIENT
  Age: 42 Year
  Sex: Female

DRUGS (4)
  1. LINZESS [Interacting]
     Active Substance: LINACLOTIDE
     Indication: IRRITABLE BOWEL SYNDROME
  2. ADVIL [Interacting]
     Active Substance: IBUPROFEN
     Indication: PAIN
     Dosage: UNK
  3. ADVIL PM [Suspect]
     Active Substance: DIPHENHYDRAMINE CITRATE\IBUPROFEN
     Indication: PAIN
     Dosage: 200 MG, AS NEEDED(ONCE A DAY OR WHEN NEEDED)(OCCASIONALLY)
     Dates: start: 2015
  4. LINZESS [Interacting]
     Active Substance: LINACLOTIDE
     Indication: CONSTIPATION
     Dosage: 290 UG, 1X/DAY
     Dates: start: 2016

REACTIONS (4)
  - Throat tightness [Not Recovered/Not Resolved]
  - Dyspnoea [Not Recovered/Not Resolved]
  - Pharyngeal oedema [Not Recovered/Not Resolved]
  - Drug interaction [Not Recovered/Not Resolved]

NARRATIVE: CASE EVENT DATE: 20180206
